FAERS Safety Report 4359709-0 (Version None)
Quarter: 2004Q2

REPORT INFORMATION
  Report Type: 
  Country: None (occurrence: None)
  Receive Date: 20040513
  Receipt Date: 20040503
  Transmission Date: 20050107
  Serious: Yes (Other)
  Sender: FDA-Public Use
  Company Number: 2004206376BE

PATIENT
  Age: 56 Year
  Sex: Female
  Weight: 33.1 kg

DRUGS (5)
  1. AROMASIN [Suspect]
     Indication: BREAST CANCER
     Dosage: 25 MG, QD, ORAL
     Route: 048
     Dates: start: 20031020
  2. CARDIOASPIRIN [Concomitant]
  3. ISOTEN 10 [Concomitant]
  4. FLUDEX [Concomitant]
  5. HYPERLIPEN (CIPROFIBRATE) [Concomitant]

REACTIONS (3)
  - BARRETT'S OESOPHAGUS [None]
  - COLITIS [None]
  - WEIGHT DECREASED [None]
